FAERS Safety Report 8040246-7 (Version None)
Quarter: 2012Q1

REPORT INFORMATION
  Report Type: 
  Country: None (occurrence: None)
  Receive Date: 20120111
  Receipt Date: 20111222
  Transmission Date: 20120608
  Serious: No
  Sender: FDA-Public Use
  Company Number: US-AMGEN-USASP2011068433

PATIENT
  Age: 31 Year
  Sex: Male

DRUGS (1)
  1. ENBREL [Suspect]
     Indication: PSORIATIC ARTHROPATHY
     Dosage: 50 MG, QWK
     Dates: start: 20110401, end: 20111219

REACTIONS (5)
  - INJECTION SITE REACTION [None]
  - APHASIA [None]
  - DISTURBANCE IN ATTENTION [None]
  - INJECTION SITE RECALL REACTION [None]
  - DIZZINESS [None]
